FAERS Safety Report 19012574 (Version 1)
Quarter: 2021Q1

REPORT INFORMATION
  Report Type: Spontaneous
  Country: US (occurrence: US)
  Receive Date: 20210315
  Receipt Date: 20210315
  Transmission Date: 20210420
  Serious: Yes (Hospitalization)
  Sender: FDA-Public Use
  Company Number: US-TEVA-2021-US-1887745

PATIENT
  Age: 69 Year
  Sex: Male

DRUGS (4)
  1. PROPRANOLOL [Concomitant]
     Active Substance: PROPRANOLOL HYDROCHLORIDE
     Indication: NEUROPATHY PERIPHERAL
     Route: 065
  2. NORTRIPTYLINE [Concomitant]
     Active Substance: NORTRIPTYLINE
     Indication: NEUROPATHY PERIPHERAL
     Route: 065
  3. GABAPENTIN. [Suspect]
     Active Substance: GABAPENTIN
     Indication: NEUROPATHY PERIPHERAL
     Dosage: 9600 MILLIGRAM DAILY;
     Route: 065
  4. TOPIRAMATE. [Concomitant]
     Active Substance: TOPIRAMATE
     Indication: NEUROPATHY PERIPHERAL
     Route: 065

REACTIONS (8)
  - Myokymia [Recovered/Resolved]
  - Myoclonus [Recovered/Resolved]
  - Muscle spasms [Recovered/Resolved]
  - Fall [Recovered/Resolved]
  - Toxicity to various agents [Recovered/Resolved]
  - Overdose [Unknown]
  - Gait disturbance [Recovered/Resolved]
  - Intentional product misuse [Unknown]
